FAERS Safety Report 8408690-3 (Version None)
Quarter: 2012Q2

REPORT INFORMATION
  Report Type: 
  Country: None (occurrence: None)
  Receive Date: 20120604
  Receipt Date: 20120215
  Transmission Date: 20120825
  Serious: No
  Sender: FDA-Public Use
  Company Number: US-NOVEN-12US004103

PATIENT
  Age: 4 Year
  Sex: Male

DRUGS (1)
  1. DAYTRANA [Suspect]
     Indication: ATTENTION DEFICIT/HYPERACTIVITY DISORDER
     Dosage: 10 MG, QD
     Route: 062
     Dates: start: 20120214

REACTIONS (6)
  - VOMITING [None]
  - HEART RATE INCREASED [None]
  - PYREXIA [None]
  - OFF LABEL USE [None]
  - COUGH [None]
  - BLOOD PRESSURE INCREASED [None]
